FAERS Safety Report 12542276 (Version 1)
Quarter: 2016Q3

REPORT INFORMATION
  Report Type: Spontaneous
  Country: US (occurrence: US)
  Receive Date: 20160708
  Receipt Date: 20160708
  Transmission Date: 20161109
  Serious: No
  Sender: FDA-Public Use
  Company Number: US-MORTON GROVE PHARMACEUTICALS, INC.-1054835

PATIENT
  Age: 71 Year
  Sex: Female

DRUGS (6)
  1. CALCIUM SUPPLEMENTS [Concomitant]
     Active Substance: CALCIUM
  2. VITAMIN B-COMPLEX [Concomitant]
     Active Substance: DEXPANTHENOL\NIACINAMIDE\PYRIDOXINE HYDROCHLORIDE\RIBOFLAVIN 5^-PHOSPHATE SODIUM\THIAMINE HYDROCHLORIDE
  3. LINDANE LOTION [Suspect]
     Active Substance: LINDANE
     Indication: LICE INFESTATION
     Route: 061
     Dates: start: 201507
  4. TYLENOL [Concomitant]
     Active Substance: ACETAMINOPHEN
  5. LEVOTHYROXINE. [Concomitant]
     Active Substance: LEVOTHYROXINE
  6. HYDROCORTISONE. [Concomitant]
     Active Substance: HYDROCORTISONE

REACTIONS (3)
  - Alopecia [None]
  - Alopecia [Not Recovered/Not Resolved]
  - Onychoclasis [None]

NARRATIVE: CASE EVENT DATE: 201507
